FAERS Safety Report 13636856 (Version 5)
Quarter: 2021Q1

REPORT INFORMATION
  Report Type: Spontaneous
  Country: US (occurrence: US)
  Receive Date: 20170609
  Receipt Date: 20210226
  Transmission Date: 20210419
  Serious: Yes (Other)
  Sender: FDA-Public Use
  Company Number: US-PFIZER INC-2017250075

PATIENT
  Age: 60 Year
  Sex: Female
  Weight: 77.11 kg

DRUGS (1)
  1. THROMBIN [Suspect]
     Active Substance: THROMBIN
     Indication: HAEMORRHAGE
     Dosage: UNK
     Dates: start: 201107, end: 201604

REACTIONS (3)
  - Drug hypersensitivity [Recovered/Resolved]
  - Urticaria [Recovered/Resolved]
  - Blister [Not Recovered/Not Resolved]

NARRATIVE: CASE EVENT DATE: 20110717
